FAERS Safety Report 7416073 (Version 4)
Quarter: 2013Q3

REPORT INFORMATION
  Report Type: Spontaneous
  Country: US (occurrence: US)
  Receive Date: 20100610
  Receipt Date: 20130717
  Transmission Date: 20140515
  Serious: Yes (Other)
  Sender: FDA-Public Use
  Company Number: US-CELGENEUS-163-20785-10060342

PATIENT
  Sex: 0

DRUGS (2)
  1. THALOMID [Suspect]
     Indication: LEPROMATOUS LEPROSY
     Dosage: 100 MILLIGRAM
     Route: 048
     Dates: start: 200712
  2. THALOMID [Suspect]
     Dosage: 200MG-100MG
     Route: 048
     Dates: start: 200703

REACTIONS (1)
  - Pregnancy of partner [Unknown]
